FAERS Safety Report 4597745-X (Version None)
Quarter: 2005Q1

REPORT INFORMATION
  Report Type: 
  Country: None (occurrence: None)
  Receive Date: 20050303
  Receipt Date: 20031121
  Transmission Date: 20050727
  Serious: Yes (Hospitalization, Disabling, Other)
  Sender: FDA-Public Use
  Company Number: US-MERCK-0311USA02543

PATIENT
  Age: 49 Year
  Sex: Male
  Weight: 109 kg

DRUGS (9)
  1. VIOXX [Suspect]
     Indication: RHEUMATOID ARTHRITIS
     Route: 048
     Dates: start: 20001127
  2. VIOXX [Suspect]
     Route: 048
     Dates: start: 20010501, end: 20020201
  3. VIOXX [Suspect]
     Route: 048
     Dates: start: 20020201
  4. GLUCOPHAGE [Concomitant]
     Route: 065
  5. ZOCOR [Concomitant]
     Route: 048
     Dates: start: 20010101
  6. ARTHROTEC [Concomitant]
     Route: 065
     Dates: start: 20010101
  7. AVANDIA [Concomitant]
     Route: 065
     Dates: start: 20001127
  8. GLYNASE [Concomitant]
     Route: 065
     Dates: start: 20001127
  9. DARVOCET-N 100 [Concomitant]
     Route: 065

REACTIONS (38)
  - ANGINA PECTORIS [None]
  - ANXIETY [None]
  - CARDIOMEGALY [None]
  - CARPAL TUNNEL SYNDROME [None]
  - CEREBROVASCULAR ACCIDENT [None]
  - CHEST DISCOMFORT [None]
  - CHEST PAIN [None]
  - CORONARY ARTERY DISEASE [None]
  - CORONARY ARTERY STENOSIS [None]
  - DEMENTIA ALZHEIMER'S TYPE [None]
  - DEPRESSION [None]
  - DIABETIC FOOT INFECTION [None]
  - DIPLOPIA [None]
  - DIZZINESS [None]
  - EMOTIONAL DISTRESS [None]
  - EYELID PTOSIS [None]
  - HAEMATURIA [None]
  - HEADACHE [None]
  - INGROWING NAIL [None]
  - INJURY [None]
  - INSOMNIA [None]
  - INTERVERTEBRAL DISC DEGENERATION [None]
  - LIMB DISCOMFORT [None]
  - MITRAL VALVE INCOMPETENCE [None]
  - MUSCLE SPASMS [None]
  - MUSCULOSKELETAL STIFFNESS [None]
  - MYALGIA [None]
  - NEUROPATHY [None]
  - OSTEOARTHRITIS [None]
  - PSYCHOMOTOR HYPERACTIVITY [None]
  - RASH [None]
  - SINOBRONCHITIS [None]
  - SOMNOLENCE [None]
  - SYNCOPE [None]
  - SYSTEMIC LUPUS ERYTHEMATOSUS [None]
  - UPPER RESPIRATORY TRACT INFECTION [None]
  - VERTIGO [None]
  - VISION BLURRED [None]
